FAERS Safety Report 9165003 (Version 2)
Quarter: 2013Q3

REPORT INFORMATION
  Report Type: Spontaneous
  Country: US (occurrence: None)
  Receive Date: 20130228
  Receipt Date: 20130815
  Transmission Date: 20140515
  Serious: Yes (Other)
  Sender: FDA-Public Use
  Company Number: ADR-2012-00738

PATIENT
  Sex: Male

DRUGS (1)
  1. LIORESAL INTRATHECAL (BACLOFEN INJECTION) [Suspect]
     Indication: MUSCLE SPASTICITY

REACTIONS (10)
  - Medical device pain [None]
  - Muscle spasms [None]
  - Treatment noncompliance [None]
  - Medical device complication [None]
  - Musculoskeletal stiffness [None]
  - Leg amputation [None]
  - Back pain [None]
  - Implant site pain [None]
  - Feeling hot [None]
  - Abdominal pain [None]
